FAERS Safety Report 7221827-7 (Version None)
Quarter: 2011Q1

REPORT INFORMATION
  Report Type: 
  Country: None (occurrence: None)
  Receive Date: 20110112
  Receipt Date: 20110107
  Transmission Date: 20110831
  Serious: Yes (Other)
  Sender: FDA-Public Use
  Company Number: A0892853A

PATIENT
  Age: 52 Year
  Sex: Female

DRUGS (8)
  1. ALBUTEROL [Concomitant]
  2. NAPROXEN [Concomitant]
  3. HYDROCODONE [Concomitant]
  4. METHOCARBAMOL [Concomitant]
  5. CYMBALTA [Concomitant]
  6. ADVAIR [Suspect]
     Indication: ASTHMA
     Dosage: 1PUFF TWICE PER DAY
     Route: 055
     Dates: start: 20091116
  7. MORPHINE [Concomitant]
  8. GABAPENTIN [Concomitant]

REACTIONS (4)
  - ASTHMA [None]
  - PRODUCT QUALITY ISSUE [None]
  - DYSPNOEA [None]
  - INHALATION THERAPY [None]
